FAERS Safety Report 18375061 (Version 1)
Quarter: 2020Q4

REPORT INFORMATION
  Report Type: Spontaneous
  Country: FR (occurrence: FR)
  Receive Date: 20201013
  Receipt Date: 20201013
  Transmission Date: 20210114
  Serious: Yes (Death)
  Sender: FDA-Public Use
  Company Number: FR-TEVA-2020-FR-1836940

PATIENT
  Age: 58 Year
  Sex: Female
  Weight: 48 kg

DRUGS (13)
  1. TEGRETOL [Concomitant]
     Active Substance: CARBAMAZEPINE
     Dosage: 1 DOSAGE FORM
     Route: 048
  2. ZOPHREN [Suspect]
     Active Substance: ONDANSETRON
     Indication: VOMITING
     Dosage: 1 DOSAGE FORM
     Route: 048
     Dates: start: 20200813, end: 20200817
  3. EMEND 80 MG, GELULE [Suspect]
     Active Substance: APREPITANT
     Indication: PROPHYLAXIS OF NAUSEA AND VOMITING
     Dosage: 1 DOSAGE FORM
     Route: 048
     Dates: start: 20200814, end: 20200815
  4. AMISULPRIDE [Concomitant]
     Active Substance: AMISULPRIDE
     Dosage: 100MG
     Route: 048
  5. NICOTINE. [Concomitant]
     Active Substance: NICOTINE
     Dosage: 14MG
     Route: 048
  6. SERESTA 10 MG, COMPRIME [Concomitant]
     Active Substance: OXAZEPAM
     Dosage: 1 DOSAGE FORM
     Route: 048
  7. MELATONINE [Concomitant]
     Active Substance: MELATONIN
     Dosage: 2MG
     Route: 048
  8. CARBOPLATIN. [Suspect]
     Active Substance: CARBOPLATIN
     Indication: BRONCHIAL CARCINOMA
     Dosage: 765MG
     Route: 041
     Dates: start: 20200813, end: 20200813
  9. KEPPRA [Concomitant]
     Active Substance: LEVETIRACETAM
     Dosage: 3 DOSAGE FORMS
     Route: 048
  10. DOLIPRANE [Concomitant]
     Active Substance: ACETAMINOPHEN
     Dosage: IF NECESSARY, 1 DOSAGE FORM
     Route: 048
  11. PRIMPERAN [Suspect]
     Active Substance: METOCLOPRAMIDE HYDROCHLORIDE
     Indication: VOMITING
     Dosage: 1 DOSAGE FORM
     Route: 048
     Dates: start: 20200813, end: 20200817
  12. GARDENAL 100 MG, COMPRIME [Concomitant]
     Active Substance: PHENOBARBITAL
     Dosage: 1 DOSAGE FORM
     Route: 048
  13. ETOPOSIDE. [Suspect]
     Active Substance: ETOPOSIDE
     Indication: BRONCHIAL CARCINOMA
     Dosage: 222MG
     Route: 041
     Dates: start: 20200813, end: 20200814

REACTIONS (3)
  - Diarrhoea [Fatal]
  - Acute kidney injury [Fatal]
  - Dehydration [Fatal]

NARRATIVE: CASE EVENT DATE: 20200817
